FAERS Safety Report 10195112 (Version 2)
Quarter: 2014Q2

REPORT INFORMATION
  Report Type: Spontaneous
  Country: FR (occurrence: FR)
  Receive Date: 20140526
  Receipt Date: 20140613
  Transmission Date: 20141212
  Serious: Yes (Other)
  Sender: FDA-Public Use
  Company Number: FR-009507513-1405FRA010432

PATIENT
  Age: 70 Year
  Sex: Female
  Weight: 59 kg

DRUGS (4)
  1. XELEVIA [Suspect]
     Indication: TYPE 2 DIABETES MELLITUS
     Dosage: 100 MG, QD
     Route: 065
     Dates: start: 20120101, end: 20140520
  2. GLUCOPHAGE [Concomitant]
     Dosage: UNK
  3. COZAAR [Concomitant]
     Dosage: UNK
     Dates: start: 2014
  4. BISOPROLOL FUMARATE (+) HYDROCHLOROTHIAZIDE [Concomitant]
     Dosage: UNK
     Dates: start: 2012

REACTIONS (1)
  - Pulmonary arterial hypertension [Not Recovered/Not Resolved]
